FAERS Safety Report 12735566 (Version 1)
Quarter: 2016Q3

REPORT INFORMATION
  Report Type: Spontaneous
  Country: US (occurrence: US)
  Receive Date: 20160912
  Receipt Date: 20160912
  Transmission Date: 20161109
  Serious: No
  Sender: FDA-Public Use
  Company Number: US-GLENMARK PHARMACEUTICALS INC, USA.-2016GMK023512

PATIENT

DRUGS (6)
  1. ATORVASTATIN [Concomitant]
     Active Substance: ATORVASTATIN
     Indication: BLOOD CHOLESTEROL INCREASED
     Dosage: 10 MG, OD
     Route: 065
  2. GABAPENTIN. [Suspect]
     Active Substance: GABAPENTIN
     Indication: OFF LABEL USE
     Dosage: 600 MG, QID
     Route: 048
     Dates: start: 201504, end: 201512
  3. LYRICA [Suspect]
     Active Substance: PREGABALIN
     Indication: FACIAL PAIN
     Dosage: UNK
     Route: 065
  4. GABAPENTIN. [Suspect]
     Active Substance: GABAPENTIN
     Dosage: 600 MG, QID
     Route: 048
     Dates: start: 201604
  5. GABAPENTIN. [Suspect]
     Active Substance: GABAPENTIN
     Indication: FACIAL PAIN
     Dosage: 600 MG, QID
     Route: 048
     Dates: start: 201404, end: 201412
  6. LYRICA [Suspect]
     Active Substance: PREGABALIN
     Indication: OFF LABEL USE

REACTIONS (4)
  - Balance disorder [Not Recovered/Not Resolved]
  - Memory impairment [Not Recovered/Not Resolved]
  - Drug ineffective for unapproved indication [Unknown]
  - Increased appetite [Not Recovered/Not Resolved]

NARRATIVE: CASE EVENT DATE: 201404
